FAERS Safety Report 6405013-6 (Version None)
Quarter: 2009Q4

REPORT INFORMATION
  Report Type: 
  Country: None (occurrence: None)
  Receive Date: 20091019
  Receipt Date: 20091006
  Transmission Date: 20100525
  Serious: Yes (Death)
  Sender: FDA-Public Use
  Company Number: JP-PFIZER INC-2009267709

PATIENT
  Age: 61 Year

DRUGS (23)
  1. CELECOX [Suspect]
     Indication: OSTEOARTHRITIS
     Dosage: 100 MG, 2X/DAY
     Route: 048
     Dates: start: 20080517, end: 20081120
  2. LIPITOR [Concomitant]
     Dosage: 10 MG, UNK
     Dates: end: 20081120
  3. TORASEMIDE [Concomitant]
     Dosage: UNK
     Dates: end: 20081120
  4. RISPERDAL [Concomitant]
     Dosage: UNK
     Dates: end: 20081113
  5. ALOSITOL [Concomitant]
     Dosage: UNK
     Dates: end: 20081120
  6. ITRIZOLE [Concomitant]
     Dosage: UNK
     Dates: end: 20081120
  7. ALDACTONE [Concomitant]
     Dosage: UNK
     Dates: end: 20081120
  8. UBRETID [Concomitant]
     Dosage: UNK
     Dates: end: 20081120
  9. EBRANTIL [Concomitant]
     Dosage: UNK
     Dates: end: 20081120
  10. OZEX [Concomitant]
     Dosage: UNK
     Dates: end: 20081116
  11. ONON [Concomitant]
     Dosage: UNK
     Dates: end: 20081120
  12. TAKEPRON [Concomitant]
     Dosage: UNK
     Dates: end: 20081120
  13. ATARAX [Concomitant]
     Dosage: UNK
     Dates: end: 20081113
  14. PROMETHAZINE HCL [Concomitant]
     Dosage: UNK
     Dates: end: 20081113
  15. PURSENNID [Concomitant]
     Dosage: UNK
     Dates: end: 20081113
  16. BENZALIN [Concomitant]
     Dosage: UNK
     Dates: end: 20081113
  17. FORIT [Concomitant]
     Dosage: UNK
     Dates: end: 20081113
  18. LASIX [Concomitant]
     Dosage: UNK
     Dates: start: 20081113, end: 20081120
  19. SULTANOL [Concomitant]
     Dosage: UNK
     Route: 055
     Dates: start: 20081107, end: 20081113
  20. FLUTIDE [Concomitant]
     Dosage: UNK
     Route: 055
     Dates: start: 20081107, end: 20081107
  21. SEISHOKU [Concomitant]
     Dosage: UNK
     Dates: start: 20081107, end: 20081113
  22. NEOPHYLLIN [Concomitant]
     Dosage: UNK
     Dates: start: 20081107, end: 20081113
  23. SAXIZON [Concomitant]
     Dosage: UNK
     Dates: start: 20081107, end: 20081113

REACTIONS (1)
  - DEATH [None]
